FAERS Safety Report 9245520 (Version 1)
Quarter: 2013Q2

REPORT INFORMATION
  Report Type: Spontaneous
  Country: US (occurrence: US)
  Receive Date: 20130422
  Receipt Date: 20130422
  Transmission Date: 20140414
  Serious: No
  Sender: FDA-Public Use
  Company Number: US-PFIZER INC-2013125060

PATIENT
  Age: 46 Year
  Sex: Female
  Weight: 69.39 kg

DRUGS (3)
  1. NEURONTIN [Suspect]
     Indication: MULTIPLE SCLEROSIS
     Dosage: 900 MG, 3X/DAY
     Dates: start: 201208, end: 201304
  2. ASPIRIN [Concomitant]
     Indication: PAIN IN EXTREMITY
     Dosage: UNK, 2X/DAY
  3. AVONEX [Concomitant]
     Indication: MULTIPLE SCLEROSIS
     Dosage: UNK, WEEKLY

REACTIONS (5)
  - Movement disorder [Not Recovered/Not Resolved]
  - Pain [Not Recovered/Not Resolved]
  - Pain in extremity [Not Recovered/Not Resolved]
  - Local swelling [Not Recovered/Not Resolved]
  - Off label use [Recovered/Resolved]
